FAERS Safety Report 10253105 (Version 1)
Quarter: 2014Q2

REPORT INFORMATION
  Report Type: Spontaneous
  Country: US (occurrence: None)
  Receive Date: 20140619
  Receipt Date: 20140619
  Transmission Date: 20141212
  Serious: Yes (Hospitalization, Disabling)
  Sender: FDA-Public Use
  Company Number: None

PATIENT
  Age: 74 Year
  Sex: Male
  Weight: 76 kg

DRUGS (15)
  1. XARELTO [Suspect]
     Indication: PULMONARY EMBOLISM
     Route: 048
     Dates: start: 20140410, end: 20140531
  2. XARELTO [Suspect]
     Indication: CEREBROVASCULAR ACCIDENT
     Route: 048
     Dates: start: 20140410, end: 20140531
  3. PROTONIX [Concomitant]
  4. LINZESS [Concomitant]
  5. VISTARIL [Concomitant]
  6. NORVASC [Concomitant]
  7. ZYRTEC [Concomitant]
  8. TRILEPTAL [Concomitant]
  9. TOPROL XL [Concomitant]
  10. PRAVACHOL [Concomitant]
  11. FLOMAX [Concomitant]
  12. NAMENDA [Concomitant]
  13. RISPERDAL [Concomitant]
  14. POTASSIUM CHLORIDE [Concomitant]
  15. PERCOCET [Concomitant]

REACTIONS (3)
  - Hemiparesis [None]
  - Depressed level of consciousness [None]
  - Nuclear magnetic resonance imaging brain abnormal [None]
